FAERS Safety Report 5501065-6 (Version None)
Quarter: 2007Q4

REPORT INFORMATION
  Report Type: 
  Country: None (occurrence: None)
  Receive Date: 20071029
  Receipt Date: 20071022
  Transmission Date: 20080405
  Serious: Yes (Other)
  Sender: FDA-Public Use
  Company Number: JP-PFIZER INC-2006050359

PATIENT
  Sex: Female
  Weight: 56 kg

DRUGS (5)
  1. ATARAX [Suspect]
     Indication: PREOPERATIVE CARE
     Route: 030
     Dates: start: 20060405, end: 20060405
  2. ATROPINE SULFATE [Suspect]
     Indication: PREOPERATIVE CARE
     Route: 030
     Dates: start: 20060405, end: 20060405
  3. TALION [Concomitant]
     Route: 048
     Dates: start: 20060302, end: 20060509
  4. RIZABEN [Concomitant]
     Route: 031
     Dates: start: 20060302, end: 20060509
  5. ALL OTHER THERAPEUTIC PRODUCTS [Concomitant]
     Route: 065

REACTIONS (7)
  - INJECTION SITE ERYTHEMA [None]
  - INJECTION SITE NECROSIS [None]
  - INJECTION SITE PAIN [None]
  - INJECTION SITE SWELLING [None]
  - OEDEMA PERIPHERAL [None]
  - SKIN NECROSIS [None]
  - SKIN ULCER [None]
